FAERS Safety Report 11930085 (Version 2)
Quarter: 2016Q1

REPORT INFORMATION
  Report Type: Report from Study
  Country: JP (occurrence: JP)
  Receive Date: 20160120
  Receipt Date: 20160308
  Transmission Date: 20160526
  Serious: Yes (Death, Hospitalization, Other)
  Sender: FDA-Public Use
  Company Number: JP-CELGENE-JPN-2015064800

PATIENT
  Age: 68 Year
  Sex: Female

DRUGS (41)
  1. AZUNOL GARGLE LIQUID [Concomitant]
     Indication: PRODUCT USED FOR UNKNOWN INDICATION
     Route: 049
  2. LIVALO [Concomitant]
     Active Substance: PITAVASTATIN CALCIUM
     Indication: PRODUCT USED FOR UNKNOWN INDICATION
     Route: 048
  3. GLUCOBAY [Concomitant]
     Active Substance: ACARBOSE
     Indication: PRODUCT USED FOR UNKNOWN INDICATION
     Route: 048
  4. NEXIUM [Concomitant]
     Active Substance: ESOMEPRAZOLE MAGNESIUM
     Indication: PROPHYLAXIS
     Route: 048
  5. LAXOBERON [Concomitant]
     Active Substance: SODIUM PICOSULFATE
     Indication: PRODUCT USED FOR UNKNOWN INDICATION
     Route: 048
  6. PREDNISOLONE. [Concomitant]
     Active Substance: PREDNISOLONE
     Indication: PLASMA CELL MYELOMA RECURRENT
     Route: 048
  7. LOXONIN [Concomitant]
     Active Substance: LOXOPROFEN SODIUM
     Indication: PLASMA CELL MYELOMA RECURRENT
     Route: 061
  8. TEPRENONE [Concomitant]
     Active Substance: TEPRENONE
     Indication: PROPHYLAXIS
     Route: 048
  9. LENADEX [Suspect]
     Active Substance: DEXAMETHASONE ACETATE
     Indication: PLASMA CELL MYELOMA RECURRENT
     Route: 048
     Dates: start: 20150605, end: 20150605
  10. LENADEX [Suspect]
     Active Substance: DEXAMETHASONE ACETATE
     Route: 048
     Dates: start: 20150819, end: 20150827
  11. BAYASPIRIN [Concomitant]
     Active Substance: ASPIRIN
     Route: 048
     Dates: start: 20150810, end: 20150917
  12. PL [Concomitant]
     Active Substance: ACETAMINOPHEN\CAFFEINE\PROMETHAZINE\SALICYLAMIDE
     Indication: PRODUCT USED FOR UNKNOWN INDICATION
     Route: 048
  13. FENTOS [Concomitant]
     Active Substance: FENTANYL
     Indication: PLASMA CELL MYELOMA RECURRENT
     Route: 062
  14. PURSENNID [Concomitant]
     Active Substance: SENNOSIDES A AND B
     Indication: PRODUCT USED FOR UNKNOWN INDICATION
     Route: 048
  15. KETOPROFEN. [Concomitant]
     Active Substance: KETOPROFEN
     Indication: PLASMA CELL MYELOMA RECURRENT
     Route: 062
  16. LENADEX [Suspect]
     Active Substance: DEXAMETHASONE ACETATE
     Route: 048
     Dates: start: 20150722, end: 20150729
  17. MS ONSHIPPU [Concomitant]
     Indication: PLASMA CELL MYELOMA RECURRENT
     Route: 062
  18. POMALYST [Suspect]
     Active Substance: POMALIDOMIDE
     Route: 048
     Dates: start: 20150910, end: 20150910
  19. LENADEX [Suspect]
     Active Substance: DEXAMETHASONE ACETATE
     Route: 048
     Dates: start: 20150810, end: 20150810
  20. OXINORM [Concomitant]
     Active Substance: OXYCODONE HYDROCHLORIDE
     Indication: PLASMA CELL MYELOMA RECURRENT
     Route: 048
  21. HYALEIN [Concomitant]
     Active Substance: HYALURONATE SODIUM
     Indication: PRODUCT USED FOR UNKNOWN INDICATION
     Route: 047
  22. DEXAMETHASONE. [Concomitant]
     Active Substance: DEXAMETHASONE
     Indication: PRODUCT USED FOR UNKNOWN INDICATION
     Route: 065
  23. BAYASPIRIN [Concomitant]
     Active Substance: ASPIRIN
     Indication: PROPHYLAXIS
     Route: 048
     Dates: start: 20150722
  24. MYSLEE [Concomitant]
     Active Substance: ZOLPIDEM TARTRATE
     Indication: PRODUCT USED FOR UNKNOWN INDICATION
     Route: 048
  25. SELBEX [Concomitant]
     Active Substance: TEPRENONE
     Indication: PROPHYLAXIS
     Route: 048
  26. POMALYST [Suspect]
     Active Substance: POMALIDOMIDE
     Route: 048
     Dates: start: 20150819, end: 20150902
  27. BONALON [Concomitant]
     Active Substance: ALENDRONATE SODIUM
     Indication: PROPHYLAXIS
     Route: 048
  28. POMALYST [Suspect]
     Active Substance: POMALIDOMIDE
     Route: 048
     Dates: start: 20150810, end: 20150812
  29. LENADEX [Suspect]
     Active Substance: DEXAMETHASONE ACETATE
     Route: 048
     Dates: start: 20150911, end: 20150911
  30. CRAVIT [Concomitant]
     Active Substance: LEVOFLOXACIN
     Indication: PRODUCT USED FOR UNKNOWN INDICATION
     Route: 048
  31. LECICARBON [Concomitant]
     Active Substance: SODIUM BICARBONATE\SODIUM PHOSPHATE, MONOBASIC
     Indication: PRODUCT USED FOR UNKNOWN INDICATION
     Route: 054
  32. MAGMITT [Concomitant]
     Active Substance: MAGNESIUM OXIDE
     Indication: PRODUCT USED FOR UNKNOWN INDICATION
     Route: 048
  33. ALKERAN [Concomitant]
     Active Substance: MELPHALAN
     Indication: PLASMA CELL MYELOMA RECURRENT
     Route: 048
  34. DEXAMETHASONE. [Concomitant]
     Active Substance: DEXAMETHASONE
     Route: 041
     Dates: start: 20150902, end: 20150905
  35. POMALYST [Suspect]
     Active Substance: POMALIDOMIDE
     Indication: PLASMA CELL MYELOMA RECURRENT
     Route: 048
     Dates: start: 20150605, end: 20150610
  36. POMALYST [Suspect]
     Active Substance: POMALIDOMIDE
     Route: 048
     Dates: start: 20150722, end: 20150729
  37. SP [Concomitant]
     Indication: PRODUCT USED FOR UNKNOWN INDICATION
     Route: 049
  38. ZOVIRAX [Concomitant]
     Active Substance: ACYCLOVIR
     Indication: PROPHYLAXIS
     Route: 048
  39. JANUVIA [Concomitant]
     Active Substance: SITAGLIPTIN PHOSPHATE
     Indication: PRODUCT USED FOR UNKNOWN INDICATION
     Route: 048
  40. CELECOX [Concomitant]
     Active Substance: CELECOXIB
     Indication: PLASMA CELL MYELOMA RECURRENT
     Route: 048
  41. CALONAL [Concomitant]
     Active Substance: ACETAMINOPHEN
     Indication: PLASMA CELL MYELOMA
     Route: 048

REACTIONS (25)
  - Plasma cell myeloma [Fatal]
  - Micturition disorder [Recovered/Resolved]
  - C-reactive protein increased [Recovered/Resolved]
  - Back pain [Not Recovered/Not Resolved]
  - Anaemia [Recovering/Resolving]
  - Proctalgia [Recovered/Resolved]
  - Blood creatinine increased [Recovered/Resolved]
  - Hypercalcaemia [Not Recovered/Not Resolved]
  - Blepharitis [Recovered/Resolved]
  - Abdominal discomfort [Recovered/Resolved]
  - Blood urea increased [Recovered/Resolved]
  - Lymphocyte count decreased [Recovered/Resolved]
  - Enterocolitis [Recovered/Resolved]
  - Rash [Recovering/Resolving]
  - Bone pain [Unknown]
  - Leukopenia [Recovered/Resolved]
  - Lip dry [Not Recovered/Not Resolved]
  - Pulmonary haemorrhage [Unknown]
  - Nausea [Recovered/Resolved]
  - Palpitations [Recovered/Resolved]
  - Rash [Recovered/Resolved]
  - Epistaxis [Not Recovered/Not Resolved]
  - Pyrexia [Recovered/Resolved]
  - Pyrexia [Recovered/Resolved]
  - Upper respiratory tract inflammation [Recovered/Resolved]

NARRATIVE: CASE EVENT DATE: 201506
